FAERS Safety Report 21501948 (Version 1)
Quarter: 2022Q4

REPORT INFORMATION
  Report Type: Spontaneous
  Country: US (occurrence: US)
  Receive Date: 20221025
  Receipt Date: 20221025
  Transmission Date: 20230113
  Serious: Yes (Other)
  Sender: FDA-Public Use
  Company Number: US-TITAN PHARMACEUTICALS-2022TAN00056

PATIENT
  Age: 39 Year
  Sex: Female

DRUGS (2)
  1. BUPRENORPHINE [Suspect]
     Active Substance: BUPRENORPHINE
     Route: 065
  2. FENTANYL [Suspect]
     Active Substance: FENTANYL
     Dosage: ILLICIT FENTANYL TABLETS; 20-30 SMOKED DAILY

REACTIONS (2)
  - Withdrawal syndrome [Unknown]
  - Delirium [Unknown]
